FAERS Safety Report 6125267-3 (Version None)
Quarter: 2009Q1

REPORT INFORMATION
  Report Type: 
  Country: None (occurrence: None)
  Receive Date: 20090320
  Receipt Date: 20090310
  Transmission Date: 20090719
  Serious: Yes (Other)
  Sender: FDA-Public Use
  Company Number: PHHY2009IT08573

PATIENT
  Age: 5 Month
  Sex: Female

DRUGS (6)
  1. CYCLOSPORINE [Suspect]
     Indication: ANAEMIA HAEMOLYTIC AUTOIMMUNE
     Dosage: 2 MG/KG/DAY
  2. CYCLOSPORINE [Suspect]
     Dosage: 4 MG/KG/DAY
  3. PREDNISOLONE [Suspect]
     Indication: ANAEMIA HAEMOLYTIC AUTOIMMUNE
     Dosage: 4 MG/KG/DAY
  4. IMMUNOGLOBULINS [Concomitant]
     Dosage: 1 G/KG
     Route: 042
  5. RITUXIMAB [Concomitant]
     Dosage: 375 MG/M2
  6. TRANSFUSIONS [Concomitant]

REACTIONS (6)
  - CD4 LYMPHOCYTES INCREASED [None]
  - CD8 LYMPHOCYTES INCREASED [None]
  - CUSHINGOID [None]
  - DISEASE RECURRENCE [None]
  - IDIOPATHIC THROMBOCYTOPENIC PURPURA [None]
  - LYMPHOPROLIFERATIVE DISORDER [None]
